FAERS Safety Report 6467174-2 (Version None)
Quarter: 2009Q4

REPORT INFORMATION
  Report Type: 
  Country: None (occurrence: None)
  Receive Date: 20091202
  Receipt Date: 20081209
  Transmission Date: 20100525
  Serious: No
  Sender: FDA-Public Use
  Company Number: US-AMGEN-KDL318852

PATIENT
  Sex: Female

DRUGS (10)
  1. ENBREL [Suspect]
     Indication: RHEUMATOID ARTHRITIS
     Route: 058
     Dates: start: 20071201
  2. ENBREL [Suspect]
     Indication: ANKYLOSING SPONDYLITIS
  3. METHOTREXATE [Concomitant]
  4. PREDNISONE [Concomitant]
  5. VICODIN [Concomitant]
  6. ZANAFLEX [Concomitant]
  7. TRAMADOL HCL [Concomitant]
  8. FOSAMAX [Concomitant]
     Dates: start: 20071210, end: 20080507
  9. TOPAMAX [Concomitant]
  10. DEPO-MEDROL [Concomitant]
     Route: 030
     Dates: start: 20071010

REACTIONS (20)
  - ARTHRALGIA [None]
  - COLONIC POLYP [None]
  - COUGH [None]
  - DIARRHOEA [None]
  - DRUG INEFFECTIVE [None]
  - DYSPNOEA [None]
  - EYE INFECTION [None]
  - HEADACHE [None]
  - HYPERSENSITIVITY [None]
  - INFECTION [None]
  - INJECTION SITE RASH [None]
  - JOINT SWELLING [None]
  - NASAL CONGESTION [None]
  - NAUSEA [None]
  - PARANASAL SINUS HYPERSECRETION [None]
  - PYREXIA [None]
  - RASH GENERALISED [None]
  - SKIN REACTION [None]
  - SNEEZING [None]
  - VISION BLURRED [None]
